FAERS Safety Report 13775772 (Version 3)
Quarter: 2018Q1

REPORT INFORMATION
  Report Type: Report from Study
  Country: DE (occurrence: DE)
  Receive Date: 20170720
  Receipt Date: 20180206
  Transmission Date: 20180508
  Serious: Yes (Life-Threatening, Hospitalization, Other)
  Sender: FDA-Public Use
  Company Number: DE-GILEAD-2017-0283534

PATIENT
  Sex: Male
  Weight: 60 kg

DRUGS (11)
  1. MABTHERA [Concomitant]
     Active Substance: RITUXIMAB
     Dosage: UNK
     Dates: start: 20160331, end: 20160530
  2. TAVEGIL                            /00137202/ [Concomitant]
     Indication: PROPHYLAXIS
     Dosage: 2 MG/5 ML
     Dates: start: 20160331
  3. ACICLOBETA [Concomitant]
     Indication: PROPHYLAXIS
     Dosage: 400/-800
     Dates: start: 20160331
  4. SPIRIVA [Concomitant]
     Active Substance: TIOTROPIUM BROMIDE MONOHYDRATE
     Indication: ASTHMA
     Dosage: 18 MICROGRAM
     Route: 055
     Dates: start: 20160331
  5. FORTECORTIN                        /00016001/ [Concomitant]
     Active Substance: DEXAMETHASONE
     Indication: PROPHYLAXIS
     Dosage: 4 MG/-8MG: 40MG/-100 MG
     Dates: start: 20160331
  6. COTRIM [Concomitant]
     Active Substance: SULFAMETHOXAZOLE\TRIMETHOPRIM
     Indication: PROPHYLAXIS
     Dosage: 240 MG/5ML, 480 MG/5MG, 960 MG,
     Dates: start: 20160331
  7. FORMOTEROL [Concomitant]
     Active Substance: FORMOTEROL
     Indication: ASTHMA
     Dosage: 12 MICROGRAM
     Route: 055
     Dates: start: 20160331
  8. IDELALISIB [Suspect]
     Active Substance: IDELALISIB
     Indication: CHRONIC LYMPHOCYTIC LEUKAEMIA
     Dosage: 300 MG, QD
     Route: 048
     Dates: start: 20160331, end: 20170222
  9. MABTHERA [Concomitant]
     Active Substance: RITUXIMAB
     Indication: CHRONIC LYMPHOCYTIC LEUKAEMIA
     Dosage: 100 MG/-500 MG
     Route: 042
     Dates: start: 20160530, end: 20170207
  10. BEROTEC [Concomitant]
     Active Substance: FENOTEROL HYDROBROMIDE
     Indication: ASTHMA
     Dosage: 100 UG, UNK
     Route: 055
  11. CYCLOCAPS BUDESONID [Concomitant]
     Indication: ASTHMA
     Dosage: 100 UG/-200 UG/400 UG/-800 UG
     Route: 055
     Dates: start: 20160331

REACTIONS (1)
  - Disease progression [Not Recovered/Not Resolved]

NARRATIVE: CASE EVENT DATE: 20170227
